FAERS Safety Report 9126458 (Version 1)
Quarter: 2013Q1

REPORT INFORMATION
  Report Type: Spontaneous
  Country: GB (occurrence: GB)
  Receive Date: 20130117
  Receipt Date: 20130117
  Transmission Date: 20140127
  Serious: Yes (Other)
  Sender: FDA-Public Use
  Company Number: GB-ROCHE-1178569

PATIENT
  Sex: Male

DRUGS (1)
  1. NAPROSYN [Suspect]
     Indication: PRODUCT USED FOR UNKNOWN INDICATION
     Dosage: AT LUNCH TIME
     Route: 065

REACTIONS (3)
  - Swelling [Unknown]
  - Mass [Unknown]
  - Feeling hot [Unknown]
